FAERS Safety Report 10142419 (Version 1)
Quarter: 2014Q2

REPORT INFORMATION
  Report Type: Spontaneous
  Country: US (occurrence: US)
  Receive Date: 20140430
  Receipt Date: 20140430
  Transmission Date: 20141212
  Serious: Yes (Hospitalization)
  Sender: FDA-Public Use
  Company Number: US-009507513-1404USA012466

PATIENT
  Age: 59 Year
  Sex: Male
  Weight: 72.11 kg

DRUGS (7)
  1. SYLATRON [Suspect]
     Indication: MALIGNANT MELANOMA
     Dosage: UNK
     Dates: start: 2013, end: 201403
  2. INTERFERON GAMMA [Suspect]
     Indication: MALIGNANT MELANOMA
     Dosage: UNK
     Route: 058
     Dates: start: 2013, end: 201403
  3. CELEXA [Concomitant]
     Route: 048
  4. COLACE [Concomitant]
     Route: 048
  5. METFORMIN HYDROCHLORIDE [Concomitant]
     Route: 048
  6. ONDANSETRON HYDROCHLORIDE [Concomitant]
     Route: 048
  7. PEPCID [Concomitant]
     Route: 048

REACTIONS (14)
  - Dehydration [Unknown]
  - Viral infection [Unknown]
  - Nausea [Unknown]
  - Vomiting [Unknown]
  - Eczema [Recovered/Resolved]
  - Impaired healing [Recovering/Resolving]
  - Wound complication [Recovering/Resolving]
  - Wound [Recovering/Resolving]
  - Injection site ulcer [Recovering/Resolving]
  - Ageusia [Recovered/Resolved]
  - Decreased appetite [Recovering/Resolving]
  - Asthenia [Recovering/Resolving]
  - Rash [Unknown]
  - Rash [Unknown]
